FAERS Safety Report 18278050 (Version 2)
Quarter: 2020Q4

REPORT INFORMATION
  Report Type: Spontaneous
  Country: NL (occurrence: NL)
  Receive Date: 20200917
  Receipt Date: 20201001
  Transmission Date: 20210113
  Serious: Yes (Other)
  Sender: FDA-Public Use
  Company Number: NL-TEVA-2020-NL-1827670

PATIENT
  Age: 58 Year
  Sex: Male

DRUGS (3)
  1. COMPLEET WEERSTAND DAVITAMON [Interacting]
     Active Substance: VITAMIN A PALMITATE
     Dosage: 1 DOSAGE FORMS DAILY;
     Dates: start: 20110210, end: 20110222
  2. FLUOXETINE [Suspect]
     Active Substance: FLUOXETINE HYDROCHLORIDE
     Dosage: 20 MILLIGRAM DAILY;  THERAPY END DATE : ASKU
     Dates: start: 20070808
  3. KEPPRA [Interacting]
     Active Substance: LEVETIRACETAM
     Dosage: 2DD3, 1500MG, THERAPY END DATE : ASKU
     Dates: start: 20060412

REACTIONS (3)
  - Insomnia [Recovered/Resolved]
  - Drug interaction [Recovered/Resolved]
  - Hallucination [Recovered/Resolved]

NARRATIVE: CASE EVENT DATE: 20110210
